FAERS Safety Report 13101717 (Version 2)
Quarter: 2017Q1

REPORT INFORMATION
  Report Type: Spontaneous
  Country: US (occurrence: US)
  Receive Date: 20170110
  Receipt Date: 20170123
  Transmission Date: 20170428
  Serious: No
  Sender: FDA-Public Use
  Company Number: US-PFIZER INC-2017007278

PATIENT
  Age: 63 Year
  Sex: Male
  Weight: 81.65 kg

DRUGS (3)
  1. LYRICA [Suspect]
     Active Substance: PREGABALIN
     Indication: PARAESTHESIA
     Dosage: UNK
  2. LYRICA [Suspect]
     Active Substance: PREGABALIN
     Indication: FIBROMYALGIA
     Dosage: 200 MG, 3X/DAY
     Dates: start: 200903, end: 201612
  3. LYRICA [Suspect]
     Active Substance: PREGABALIN
     Indication: PAIN IN EXTREMITY

REACTIONS (5)
  - Mood altered [Unknown]
  - Intentional product use issue [Unknown]
  - Pain in extremity [Unknown]
  - Feeling abnormal [Unknown]
  - Anger [Unknown]

NARRATIVE: CASE EVENT DATE: 201612
